FAERS Safety Report 10391100 (Version 2)
Quarter: 2014Q4

REPORT INFORMATION
  Report Type: Spontaneous
  Country: US (occurrence: US)
  Receive Date: 20140818
  Receipt Date: 20141103
  Transmission Date: 20150528
  Serious: Yes (Other)
  Sender: FDA-Public Use
  Company Number: US-GLAXOSMITHKLINE-A1085285A

PATIENT
  Age: 53 Year
  Sex: Female

DRUGS (2)
  1. LAMICTAL XR [Suspect]
     Active Substance: LAMOTRIGINE
     Indication: SEIZURE
     Dosage: 200 MG, UNKNOWN DOSING
     Route: 065
     Dates: start: 20130319
  2. VIMPAT [Suspect]
     Active Substance: LACOSAMIDE
     Indication: PRODUCT USED FOR UNKNOWN INDICATION
     Dosage: UNKNOWN STRENGTH
     Route: 065

REACTIONS (4)
  - Fall [Unknown]
  - Balance disorder [Unknown]
  - Treatment noncompliance [Unknown]
  - Road traffic accident [Unknown]

NARRATIVE: CASE EVENT DATE: 20131005
